FAERS Safety Report 10378127 (Version 1)
Quarter: 2014Q3

REPORT INFORMATION
  Report Type: Spontaneous
  Country: AR (occurrence: None)
  Receive Date: 20140807
  Receipt Date: 20140807
  Transmission Date: 20150326
  Serious: Yes (Other)
  Sender: FDA-Public Use
  Company Number: IPC201407-000401

PATIENT
  Age: 79 Year
  Sex: Female

DRUGS (3)
  1. ATENOLOL (ATENOLOL) (ATENOLOL) [Suspect]
     Active Substance: ATENOLOL
  2. CARVEDILOL (CARVEDILOL) (CARVEDILOL) [Suspect]
     Active Substance: CARVEDILOL
  3. DRONEDARONE [Suspect]
     Active Substance: DRONEDARONE

REACTIONS (6)
  - Cardiac failure congestive [None]
  - Muscle spasms [None]
  - Sinus bradycardia [None]
  - Atrioventricular block first degree [None]
  - Brain natriuretic peptide increased [None]
  - Atrial fibrillation [None]
